FAERS Safety Report 25543039 (Version 1)
Quarter: 2025Q3

REPORT INFORMATION
  Report Type: Report from Study
  Country: TW (occurrence: TW)
  Receive Date: 20250711
  Receipt Date: 20250711
  Transmission Date: 20251020
  Serious: Yes (Life-Threatening, Other)
  Sender: ACCORD
  Company Number: TW-Accord-493368

PATIENT
  Age: 63 Year
  Sex: Male

DRUGS (6)
  1. FLUOROURACIL [Suspect]
     Active Substance: FLUOROURACIL
     Indication: Oesophageal carcinoma
  2. CISPLATIN [Suspect]
     Active Substance: CISPLATIN
     Indication: Oesophageal carcinoma
     Dosage: DAY 1
  3. DOCETAXEL [Suspect]
     Active Substance: DOCETAXEL
     Indication: Oesophageal carcinoma
     Dosage: DAY 8
  4. METHOTREXATE [Suspect]
     Active Substance: METHOTREXATE
     Indication: Oesophageal carcinoma
  5. LEUCOVORIN [Suspect]
     Active Substance: LEUCOVORIN\LEUCOVORIN CALCIUM
     Indication: Oesophageal carcinoma
     Dosage: DAY 15
  6. EPIRUBICIN [Suspect]
     Active Substance: EPIRUBICIN
     Indication: Oesophageal carcinoma

REACTIONS (2)
  - Thrombocytopenia [Unknown]
  - Febrile neutropenia [Unknown]
